FAERS Safety Report 24119306 (Version 1)
Quarter: 2024Q3

REPORT INFORMATION
  Report Type: Other
  Country: CA (occurrence: CA)
  Receive Date: 20240722
  Receipt Date: 20240722
  Transmission Date: 20241017
  Serious: Yes (Hospitalization, Other)
  Sender: BIOCON
  Company Number: CA-BIOCON BIOLOGICS LIMITED-BBL2024005299

PATIENT

DRUGS (1)
  1. TRASTUZUMAB [Suspect]
     Active Substance: TRASTUZUMAB
     Indication: HER2 positive breast cancer
     Dosage: 562 MILLIGRAM, Q3W (1 EVERY 3 WEEKS)
     Route: 065

REACTIONS (8)
  - Dysuria [Recovering/Resolving]
  - Decreased appetite [Recovering/Resolving]
  - Pulmonary thrombosis [Recovering/Resolving]
  - Fatigue [Recovering/Resolving]
  - Paraesthesia oral [Recovering/Resolving]
  - Neuropathy peripheral [Recovering/Resolving]
  - Weight decreased [Recovering/Resolving]
  - Off label use [Recovering/Resolving]
